FAERS Safety Report 19447872 (Version 3)
Quarter: 2021Q4

REPORT INFORMATION
  Report Type: Spontaneous
  Country: US (occurrence: US)
  Receive Date: 20210622
  Receipt Date: 20211014
  Transmission Date: 20220303
  Serious: Yes (Hospitalization, Other)
  Sender: FDA-Public Use
  Company Number: US-TEVA-2021-US-1925677

PATIENT
  Age: 49 Year
  Sex: Female

DRUGS (1)
  1. PROAIR HFA [Suspect]
     Active Substance: ALBUTEROL SULFATE
     Route: 065

REACTIONS (8)
  - Renal cancer [Unknown]
  - Hospitalisation [Unknown]
  - Transfusion [Unknown]
  - Dyspnoea [Unknown]
  - Gait disturbance [Unknown]
  - Impaired quality of life [Unknown]
  - Therapy interrupted [Unknown]
  - Mobility decreased [Unknown]

NARRATIVE: CASE EVENT DATE: 20210924
